FAERS Safety Report 17107184 (Version 1)
Quarter: 2019Q4

REPORT INFORMATION
  Report Type: Report from Study
  Country: FR (occurrence: FR)
  Receive Date: 20191203
  Receipt Date: 20191203
  Transmission Date: 20200122
  Serious: Yes (Other)
  Sender: FDA-Public Use
  Company Number: FR-GLAXOSMITHKLINE-FR2019TSO213896

PATIENT
  Age: 53 Year
  Sex: Female

DRUGS (3)
  1. NIRAPARIB [Suspect]
     Active Substance: NIRAPARIB
     Dosage: UNK (THIRD LINE MAINTENANCE (MAINTENANCE THERAPY FOLLOWING THIRD LINE TREATMENT)
  2. NIRAPARIB [Suspect]
     Active Substance: NIRAPARIB
     Indication: OVARIAN CANCER
     Dosage: 300 MG, QD (THIRD LINE MAINTENANCE (MAINTENANCE THERAPY FOLLOWING THIRD LINE TREATMENT)
  3. NIRAPARIB [Suspect]
     Active Substance: NIRAPARIB
     Dosage: UNK (THIRD LINE MAINTENANCE (MAINTENANCE THERAPY FOLLOWING THIRD LINE TREATMENT)

REACTIONS (3)
  - Recurrent cancer [Unknown]
  - Disease progression [Unknown]
  - Drug tolerance [Unknown]
